FAERS Safety Report 10767797 (Version 1)
Quarter: 2015Q1

REPORT INFORMATION
  Report Type: Report from Study
  Country: IT (occurrence: IT)
  Receive Date: 20150205
  Receipt Date: 20150205
  Transmission Date: 20150721
  Serious: Yes (Other)
  Sender: FDA-Public Use
  Company Number: IT-ABBVIE-15P-083-1343243-00

PATIENT
  Sex: Female
  Weight: 70 kg

DRUGS (1)
  1. LEVODOPA/CARBIDOPA [Suspect]
     Active Substance: CARBIDOPA\LEVODOPA
     Indication: PARKINSON^S DISEASE
     Dosage: MD 8(+3) ML?CR 3,8 ML/H?ED 3,0 ML
     Route: 050
     Dates: start: 20140620

REACTIONS (1)
  - Skin lesion [Unknown]
